FAERS Safety Report 15594146 (Version 3)
Quarter: 2019Q1

REPORT INFORMATION
  Report Type: Report from Study
  Country: US (occurrence: US)
  Receive Date: 20181107
  Receipt Date: 20190313
  Transmission Date: 20190417
  Serious: Yes (Hospitalization)
  Sender: FDA-Public Use
  Company Number: PHEH2018US046737

PATIENT
  Sex: Female

DRUGS (1)
  1. COSENTYX [Suspect]
     Active Substance: SECUKINUMAB
     Indication: PSORIASIS
     Dosage: 300 MG, QMO
     Route: 058
     Dates: start: 20180516

REACTIONS (5)
  - Concomitant disease aggravated [Unknown]
  - Skin lesion [Unknown]
  - Product storage error [Unknown]
  - Blood potassium decreased [Unknown]
  - Addison^s disease [Unknown]
